FAERS Safety Report 26069079 (Version 1)
Quarter: 2025Q4

REPORT INFORMATION
  Report Type: Report from Study
  Country: GT (occurrence: GT)
  Receive Date: 20251120
  Receipt Date: 20251120
  Transmission Date: 20260118
  Serious: Yes (Other)
  Sender: BAYER HEALTHCARE PHARMACEUTICALS INC.
  Company Number: GT-BAYER-2025A148732

PATIENT
  Age: 66 Year
  Sex: Male

DRUGS (2)
  1. FINERENONE [Suspect]
     Active Substance: FINERENONE
     Indication: Chronic kidney disease
     Dosage: 10 MG
     Route: 048
     Dates: start: 2023, end: 20251104
  2. FINERENONE [Suspect]
     Active Substance: FINERENONE
     Indication: Chronic kidney disease
     Dosage: 20 MG
     Route: 048
     Dates: start: 20251104

REACTIONS (3)
  - Blood creatinine increased [Not Recovered/Not Resolved]
  - Off label use [None]
  - Off label use [None]

NARRATIVE: CASE EVENT DATE: 20251104
